FAERS Safety Report 6376136-5 (Version None)
Quarter: 2009Q3

REPORT INFORMATION
  Report Type: 
  Country: None (occurrence: None)
  Receive Date: 20090918
  Receipt Date: 20090908
  Transmission Date: 20100115
  Serious: No
  Sender: FDA-Public Use
  Company Number: SPV1-2009-01596

PATIENT
  Age: 90 Year
  Sex: Female

DRUGS (4)
  1. FOSRENOL [Suspect]
     Indication: HYPERPHOSPHATAEMIA
     Dosage: ORAL
     Route: 048
     Dates: start: 20090714, end: 20090730
  2. FOSRENOL [Suspect]
     Indication: HYPERPHOSPHATAEMIA
     Dosage: ORAL
     Route: 048
     Dates: start: 20090731
  3. BAYASPRIN (ACETYLSALICYLIC ACID) [Suspect]
     Indication: MYOCARDIAL ISCHAEMIA
     Dosage: 100 MG, ORAL
     Route: 048
     Dates: start: 20090715
  4. WARFARIN SODIUM [Concomitant]

REACTIONS (6)
  - CONSTIPATION [None]
  - DRUG ADMINISTRATION ERROR [None]
  - FAECAL DISIMPACTION [None]
  - GASTROINTESTINAL INJURY [None]
  - HAEMATOCHEZIA [None]
  - RECTAL HAEMORRHAGE [None]
